FAERS Safety Report 5640697-1 (Version None)
Quarter: 2008Q1

REPORT INFORMATION
  Report Type: 
  Country: None (occurrence: None)
  Receive Date: 20080227
  Receipt Date: 20080218
  Transmission Date: 20080703
  Serious: Yes (Hospitalization)
  Sender: FDA-Public Use
  Company Number: PHHO2008DE02043

PATIENT
  Age: 64 Year
  Sex: Male
  Weight: 62.5 kg

DRUGS (5)
  1. CELLCEPT [Concomitant]
     Dosage: 2 X 1G
     Dates: start: 20070114, end: 20080131
  2. ACYCLOVIR [Concomitant]
  3. ALLOPURINOL [Concomitant]
  4. NEORAL [Suspect]
     Indication: LIVER TRANSPLANT
  5. CERTICAN [Suspect]
     Indication: LUNG TRANSPLANT
     Dosage: 0.625 MG
     Route: 048
     Dates: start: 20070209, end: 20080130

REACTIONS (11)
  - BLOOD CREATININE INCREASED [None]
  - BLOOD LACTATE DEHYDROGENASE INCREASED [None]
  - BLOOD PRESSURE INCREASED [None]
  - DEHYDRATION [None]
  - EYELID OEDEMA [None]
  - FATIGUE [None]
  - MICROCYTIC ANAEMIA [None]
  - NEPHROPATHY TOXIC [None]
  - NIGHT SWEATS [None]
  - OEDEMA PERIPHERAL [None]
  - RENAL IMPAIRMENT [None]
